FAERS Safety Report 24140672 (Version 1)
Quarter: 2024Q3

REPORT INFORMATION
  Report Type: Other
  Country: IN (occurrence: IN)
  Receive Date: 20240726
  Receipt Date: 20240726
  Transmission Date: 20241016
  Serious: Yes (Hospitalization)
  Sender: EMD SERONO INC
  Company Number: IN-Merck Healthcare KGaA-2024039406

PATIENT
  Age: 58 Year
  Sex: Male

DRUGS (1)
  1. GLIMEPIRIDE\METFORMIN [Suspect]
     Active Substance: GLIMEPIRIDE\METFORMIN
     Indication: Product used for unknown indication
     Dosage: METFORMIN 500 MG + GLIMEPIRIDE 1 MG

REACTIONS (4)
  - Toxic encephalopathy [Recovered/Resolved]
  - Lactic acidosis [Recovered/Resolved]
  - Contraindicated product administered [Unknown]
  - Product prescribing error [Unknown]
